FAERS Safety Report 17037177 (Version 2)
Quarter: 2019Q4

REPORT INFORMATION
  Report Type: Spontaneous
  Country: CZ (occurrence: CZ)
  Receive Date: 20191115
  Receipt Date: 20191122
  Transmission Date: 20200122
  Serious: Yes (Other)
  Sender: FDA-Public Use
  Company Number: CZ-JNJFOC-20191111552

PATIENT
  Sex: Female

DRUGS (2)
  1. ACITRETIN. [Concomitant]
     Active Substance: ACITRETIN
     Dates: start: 20171129, end: 20171215
  2. STELARA [Suspect]
     Active Substance: USTEKINUMAB
     Indication: PSORIASIS
     Route: 058
     Dates: start: 20171004, end: 20180131

REACTIONS (7)
  - Cardiac failure [Recovered/Resolved]
  - Lymphadenopathy [Unknown]
  - Drug ineffective [Unknown]
  - Respiratory failure [Recovered/Resolved]
  - Hypertension [Unknown]
  - Bronchial wall thickening [Recovered/Resolved]
  - Nodule [Recovered/Resolved]

NARRATIVE: CASE EVENT DATE: 2017
